FAERS Safety Report 10978099 (Version 1)
Quarter: 2015Q2

REPORT INFORMATION
  Report Type: Spontaneous
  Country: CN (occurrence: CN)
  Receive Date: 20150402
  Receipt Date: 20150402
  Transmission Date: 20150821
  Serious: Yes (Death)
  Sender: FDA-Public Use
  Company Number: CN-GE HEALTHCARE MEDICAL DIAGNOSTICS-OMPQ-PR-1503S-0275

PATIENT
  Age: 42 Year
  Sex: Male
  Weight: 103 kg

DRUGS (2)
  1. OMNIPAQUE [Suspect]
     Active Substance: IOHEXOL
     Indication: DIAGNOSTIC PROCEDURE
  2. OMNIPAQUE [Suspect]
     Active Substance: IOHEXOL
     Indication: PRODUCT USED FOR UNKNOWN INDICATION
     Route: 042
     Dates: start: 20150306, end: 20150306

REACTIONS (6)
  - Cough [Fatal]
  - Cyanosis [Fatal]
  - Chest discomfort [Fatal]
  - Pyrexia [Fatal]
  - Dyspnoea [Fatal]
  - Flushing [Fatal]

NARRATIVE: CASE EVENT DATE: 20150306
